FAERS Safety Report 9106054 (Version 1)
Quarter: 2013Q1

REPORT INFORMATION
  Report Type: Spontaneous
  Country: GB (occurrence: GB)
  Receive Date: 20130221
  Receipt Date: 20130221
  Transmission Date: 20140127
  Serious: Yes (Disabling)
  Sender: FDA-Public Use
  Company Number: GB-EISAI INC-E2080-00601-SPO-GB

PATIENT
  Age: 35 Year
  Sex: Male
  Weight: 90 kg

DRUGS (2)
  1. RUFINAMIDE [Suspect]
     Indication: DROP ATTACKS
     Route: 048
  2. RUFINAMIDE [Suspect]
     Route: 048
     Dates: start: 20100901

REACTIONS (1)
  - Dysphemia [Not Recovered/Not Resolved]
